FAERS Safety Report 4852480-5 (Version None)
Quarter: 2005Q4

REPORT INFORMATION
  Report Type: 
  Country: None (occurrence: None)
  Receive Date: 20051213
  Receipt Date: 20050325
  Transmission Date: 20060501
  Serious: Yes (Death)
  Sender: FDA-Public Use
  Company Number: JP-BRISTOL-MYERS SQUIBB COMPANY-12913398

PATIENT
  Age: 70 Year
  Sex: Male

DRUGS (9)
  1. UFT [Suspect]
     Indication: GUM NEOPLASM MALIGNANT STAGE UNSPECIFIED
     Dosage: DOSING: 6 CAPS/DAY 08-JUN TO 22-JUL-1988 3 CAPS/DAY 28-OCT TO 03-NOV-1997
     Route: 048
     Dates: start: 19971104, end: 19980709
  2. UFT [Suspect]
     Indication: OROPHARYNGEAL CANCER STAGE UNSPECIFIED
     Dosage: DOSING: 6 CAPS/DAY 08-JUN TO 22-JUL-1988 3 CAPS/DAY 28-OCT TO 03-NOV-1997
     Route: 048
     Dates: start: 19971104, end: 19980709
  3. RANDA [Suspect]
     Indication: GUM NEOPLASM MALIGNANT STAGE UNSPECIFIED
     Dosage: 40 MG DOSE: 13-JUN-1988 AND 06-JUL-1988
     Route: 042
     Dates: start: 19880812, end: 19880812
  4. RANDA [Suspect]
     Indication: OROPHARYNGEAL CANCER STAGE UNSPECIFIED
     Dosage: 40 MG DOSE: 13-JUN-1988 AND 06-JUL-1988
     Route: 042
     Dates: start: 19880812, end: 19880812
  5. FLUOROURACIL [Suspect]
     Indication: GUM NEOPLASM MALIGNANT STAGE UNSPECIFIED
     Route: 042
     Dates: start: 19880609, end: 19880613
  6. FLUOROURACIL [Suspect]
     Indication: OROPHARYNGEAL CANCER STAGE UNSPECIFIED
     Route: 042
     Dates: start: 19880609, end: 19880613
  7. RADIOTHERAPY [Suspect]
     Indication: LIP AND/OR ORAL CAVITY CANCER
  8. PEPLEO [Suspect]
     Indication: GUM NEOPLASM MALIGNANT STAGE UNSPECIFIED
     Route: 042
     Dates: start: 19880614, end: 19880715
  9. PEPLEO [Suspect]
     Indication: OROPHARYNGEAL CANCER STAGE UNSPECIFIED
     Route: 042
     Dates: start: 19880614, end: 19880715

REACTIONS (3)
  - MYELODYSPLASTIC SYNDROME [None]
  - PNEUMONIA [None]
  - REFRACTORY ANAEMIA WITH AN EXCESS OF BLASTS [None]
